FAERS Safety Report 9640680 (Version 1)
Quarter: 2013Q4

REPORT INFORMATION
  Report Type: Report from Study
  Country: US (occurrence: US)
  Receive Date: 20131023
  Receipt Date: 20131023
  Transmission Date: 20140711
  Serious: No
  Sender: FDA-Public Use
  Company Number: US-ABBVIE-13P-163-1151005-00

PATIENT
  Age: 21 Year
  Sex: Female
  Weight: 84.9 kg

DRUGS (3)
  1. LUPRON DEPOT [Suspect]
     Indication: PRODUCT USED FOR UNKNOWN INDICATION
  2. NORETHINDRONE [Concomitant]
     Indication: HOT FLUSH
  3. PANTOPRAZOLE [Concomitant]
     Indication: GASTRITIS

REACTIONS (8)
  - High risk sexual behaviour [Unknown]
  - Back pain [Not Recovered/Not Resolved]
  - Muscle spasms [Recovered/Resolved]
  - Fatigue [Not Recovered/Not Resolved]
  - Metrorrhagia [Recovered/Resolved]
  - Mood altered [Not Recovered/Not Resolved]
  - Mood swings [Not Recovered/Not Resolved]
  - Metrorrhagia [Recovered/Resolved]
